FAERS Safety Report 6983148-7 (Version None)
Quarter: 2010Q3

REPORT INFORMATION
  Report Type: 
  Country: None (occurrence: None)
  Receive Date: 20100914
  Receipt Date: 20100703
  Transmission Date: 20110219
  Serious: No
  Sender: FDA-Public Use
  Company Number: US-PFIZER INC-2010083684

PATIENT
  Sex: Female
  Weight: 68.027 kg

DRUGS (3)
  1. LYRICA [Suspect]
     Indication: NEURALGIA
     Dosage: 100 MG, 3X/DAY
     Route: 048
     Dates: start: 20100301
  2. LYRICA [Suspect]
     Indication: BACK DISORDER
     Dosage: 150 MG, 2X/DAY
     Route: 048
     Dates: start: 20100622, end: 20100702
  3. DICLOFENAC [Concomitant]
     Indication: NEURALGIA
     Dosage: UNK
     Route: 061

REACTIONS (1)
  - DRUG INEFFECTIVE [None]
